FAERS Safety Report 9286603 (Version 1)
Quarter: 2013Q2

REPORT INFORMATION
  Report Type: Spontaneous
  Country: CN (occurrence: CN)
  Receive Date: 20130513
  Receipt Date: 20130513
  Transmission Date: 20140414
  Serious: Yes (Hospitalization)
  Sender: FDA-Public Use
  Company Number: PHHY2013CN045457

PATIENT
  Age: 13 Year
  Sex: Female

DRUGS (4)
  1. TOPIRAMATE [Suspect]
     Indication: MENTAL DISORDER
     Dosage: 150 MG, QD
  2. TOPIRAMATE [Suspect]
     Dosage: 175 MG, QD
  3. OLANZAPINE [Suspect]
     Indication: MENTAL DISORDER
     Dosage: 5 MG, QD
  4. OLANZAPINE [Suspect]
     Dosage: 10 MG, QD

REACTIONS (8)
  - Metabolic acidosis [Recovered/Resolved]
  - Acidosis hyperchloraemic [Recovered/Resolved]
  - Renal tubular acidosis [Recovered/Resolved]
  - Extrapyramidal disorder [Recovered/Resolved]
  - Restlessness [Recovered/Resolved]
  - Hallucination, visual [Recovered/Resolved]
  - Hallucination [Recovered/Resolved]
  - Hallucination, auditory [Recovered/Resolved]
